FAERS Safety Report 8613405-X (Version None)
Quarter: 2012Q3

REPORT INFORMATION
  Report Type: 
  Country: None (occurrence: None)
  Receive Date: 20120822
  Receipt Date: 20120626
  Transmission Date: 20120928
  Serious: No
  Sender: FDA-Public Use
  Company Number: US-009507513-1208USA006366

PATIENT

DRUGS (3)
  1. A AND D FIRST AID [Suspect]
     Indication: SKIN IRRITATION
     Dosage: UNK, UNKNOWN
     Route: 061
     Dates: start: 20120601
  2. CALAMINE LOTION [Concomitant]
     Indication: SKIN IRRITATION
     Dosage: UNK, UNKNOWN
     Route: 065
  3. VASELINE [Concomitant]
     Indication: SKIN IRRITATION
     Dosage: UNK, UNKNOWN
     Route: 065

REACTIONS (1)
  - DRUG INEFFECTIVE [None]
